FAERS Safety Report 8728388 (Version 2)
Quarter: 2013Q1

REPORT INFORMATION
  Report Type: Report from Study
  Country: DE (occurrence: DE)
  Receive Date: 20120817
  Receipt Date: 20130104
  Transmission Date: 20140127
  Serious: Yes (Hospitalization)
  Sender: FDA-Public Use
  Company Number: DE-UCBSA-063430

PATIENT
  Age: 56 Year
  Sex: Female
  Weight: 80 kg

DRUGS (12)
  1. CIMZIA [Suspect]
     Indication: RHEUMATOID ARTHRITIS
     Dosage: NO OF DOSES RECEIVED: 66
     Route: 058
     Dates: start: 20110223, end: 20120807
  2. PREDNISOLONE [Concomitant]
     Indication: RHEUMATOID ARTHRITIS
     Dates: start: 201208
  3. RAMIPRIL / HCT [Concomitant]
     Indication: HYPERTENSION
     Dates: start: 200903
  4. RAMIPRIL [Concomitant]
     Indication: HYPERTENSION
     Dates: start: 200903
  5. UDC [Concomitant]
     Indication: HEPATOBILIARY DISEASE
     Dates: start: 1998
  6. CALCIUM/VITAMIN D [Concomitant]
     Indication: OSTEOPOROSIS PROPHYLAXIS
     Dosage: AS USED: 600MG+400IU
  7. OXYBUTYNIN [Concomitant]
     Dates: start: 201205
  8. SULFASALAZINE [Concomitant]
     Dates: start: 2010
  9. BUDESONIDE [Concomitant]
     Indication: COLITIS MICROSCOPIC
     Dates: start: 201108
  10. BISOPROLOL [Concomitant]
     Indication: HYPERTENSION
     Dates: start: 2009
  11. TORASEMIDE [Concomitant]
     Indication: HYPERTENSION
     Dates: start: 2009
  12. PREGABALIN [Concomitant]
     Indication: NEURALGIA
     Dates: start: 201204

REACTIONS (1)
  - Leukocytosis [Not Recovered/Not Resolved]
